FAERS Safety Report 24259689 (Version 1)
Quarter: 2024Q3

REPORT INFORMATION
  Report Type: Spontaneous
  Country: US (occurrence: US)
  Receive Date: 20240828
  Receipt Date: 20240828
  Transmission Date: 20241017
  Serious: Yes (Death)
  Sender: AMGEN
  Company Number: US-AMGEN-USASP2024167678

PATIENT
  Age: 77 Year
  Sex: Female

DRUGS (4)
  1. XGEVA [Suspect]
     Active Substance: DENOSUMAB
     Indication: Papillary thyroid cancer
     Dosage: UNK
     Route: 065
     Dates: start: 201803
  2. I-131 IODINATED ALBUMIN [Concomitant]
     Indication: Papillary thyroid cancer
     Dosage: 200 MILLICURIE
     Dates: start: 200211
  3. I-131 IODINATED ALBUMIN [Concomitant]
     Dosage: 100 MILLICURIE
     Dates: start: 200401
  4. LENVATINIB [Concomitant]
     Active Substance: LENVATINIB
     Indication: Papillary thyroid cancer
     Dosage: UNK
     Dates: start: 201803

REACTIONS (2)
  - Papillary thyroid cancer [Fatal]
  - Thyroid cancer metastatic [Fatal]

NARRATIVE: CASE EVENT DATE: 20230901
